FAERS Safety Report 8297355-7 (Version None)
Quarter: 2012Q2

REPORT INFORMATION
  Report Type: 
  Country: None (occurrence: None)
  Receive Date: 20120417
  Receipt Date: 20120410
  Transmission Date: 20120825
  Serious: No
  Sender: FDA-Public Use
  Company Number: 2012SP016118

PATIENT
  Age: 33 Year
  Sex: Female
  Weight: 70 kg

DRUGS (3)
  1. ABILIFY [Concomitant]
  2. SERTRALINE HYDROCHLORIDE [Concomitant]
  3. SYCREST (ASENAPINE /05706901/) (5 MG) [Suspect]
     Indication: BIPOLAR DISORDER
     Dosage: 5 MG, QD, PO
     Route: 048
     Dates: start: 20120319, end: 20120319

REACTIONS (2)
  - VERTIGO [None]
  - FALL [None]
